FAERS Safety Report 18378965 (Version 1)
Quarter: 2020Q4

REPORT INFORMATION
  Report Type: Spontaneous
  Country: DE (occurrence: DE)
  Receive Date: 20201013
  Receipt Date: 20201013
  Transmission Date: 20210114
  Serious: Yes (Life-Threatening, Hospitalization, Other)
  Sender: FDA-Public Use
  Company Number: DE-ELI_LILLY_AND_COMPANY-DE202010003264

PATIENT
  Age: 51 Year
  Sex: Female

DRUGS (2)
  1. OLANZAPINE. [Suspect]
     Active Substance: OLANZAPINE
     Dosage: 1200 MG, UNKNOWN
     Route: 065
  2. OLANZAPINE. [Suspect]
     Active Substance: OLANZAPINE
     Indication: PRODUCT USED FOR UNKNOWN INDICATION
     Dosage: 5 MG, DAILY
     Route: 065

REACTIONS (9)
  - Toxicity to various agents [Unknown]
  - Suicide attempt [Unknown]
  - Haemorrhage intracranial [Unknown]
  - Coma [Unknown]
  - Neuroleptic malignant syndrome [Unknown]
  - Basal ganglia haemorrhage [Unknown]
  - Overdose [Unknown]
  - Quadriparesis [Unknown]
  - Loss of consciousness [Unknown]
